FAERS Safety Report 19824188 (Version 2)
Quarter: 2021Q4

REPORT INFORMATION
  Report Type: Spontaneous
  Country: US (occurrence: US)
  Receive Date: 20210913
  Receipt Date: 20211104
  Transmission Date: 20220303
  Serious: No
  Sender: FDA-Public Use
  Company Number: US-INSUD PHARMA-2109US00969

PATIENT

DRUGS (2)
  1. PROGESTERONE [Suspect]
     Active Substance: PROGESTERONE
     Indication: Hormone level abnormal
     Dosage: 200 MILLIGRAM INTERMITTENTLY OVER PAST 2 YEARS
     Route: 048
     Dates: start: 201909
  2. BIOTE HORMONE PELLET THERAPY [ESTROGEN NOS;TESTOSTERONE] [Concomitant]
     Indication: Hormone replacement therapy
     Dosage: UNK
     Route: 065
     Dates: start: 201909

REACTIONS (2)
  - Migraine [Recovering/Resolving]
  - Musculoskeletal stiffness [Recovering/Resolving]

NARRATIVE: CASE EVENT DATE: 20190101
